FAERS Safety Report 12976416 (Version 1)
Quarter: 2016Q4

REPORT INFORMATION
  Report Type: Spontaneous
  Country: US (occurrence: US)
  Receive Date: 20161127
  Receipt Date: 20161127
  Transmission Date: 20170207
  Serious: No
  Sender: FDA-Public Use
  Company Number: US-ASTRAZENECA-2016SF21375

PATIENT
  Sex: Female
  Weight: 64.9 kg

DRUGS (5)
  1. SYMBICORT [Suspect]
     Active Substance: BUDESONIDE\FORMOTEROL FUMARATE DIHYDRATE
     Indication: BRONCHITIS
     Dosage: PRESCRIBED, 80/4.5MCG, 2 PUFFS, TWICE A DAY
     Route: 055
     Dates: start: 2011
  2. PROAIR HFA [Concomitant]
     Active Substance: ALBUTEROL SULFATE
     Dosage: 8.5GM 2 PUFFS EVERY FOUR HOURS AS NEEDED
     Route: 055
  3. SYMBICORT [Suspect]
     Active Substance: BUDESONIDE\FORMOTEROL FUMARATE DIHYDRATE
     Indication: BRONCHITIS
     Dosage: ONCE A DAY AT NIGHT
     Route: 055
     Dates: start: 2011
  4. SYMBICORT [Suspect]
     Active Substance: BUDESONIDE\FORMOTEROL FUMARATE DIHYDRATE
     Indication: CHRONIC OBSTRUCTIVE PULMONARY DISEASE
     Dosage: ONCE A DAY AT NIGHT
     Route: 055
     Dates: start: 2011
  5. SYMBICORT [Suspect]
     Active Substance: BUDESONIDE\FORMOTEROL FUMARATE DIHYDRATE
     Indication: CHRONIC OBSTRUCTIVE PULMONARY DISEASE
     Dosage: PRESCRIBED, 80/4.5MCG, 2 PUFFS, TWICE A DAY
     Route: 055
     Dates: start: 2011

REACTIONS (3)
  - Intentional product misuse [Unknown]
  - Off label use [Unknown]
  - Night sweats [Unknown]
